FAERS Safety Report 8819415 (Version 1)
Quarter: 2012Q4

REPORT INFORMATION
  Report Type: Spontaneous
  Country: US (occurrence: None)
  Receive Date: 20121003
  Receipt Date: 20121003
  Transmission Date: 20130627
  Serious: No
  Sender: FDA-Public Use
  Company Number: B0834657A

PATIENT
  Age: 14 Month
  Sex: Male

DRUGS (2)
  1. MELPHALAN [Suspect]
     Indication: RETINOBLASTOMA UNILATERAL
     Dosage: 5 MG/CYCLIC/INTRAARTERIAL
     Route: 013
  2. CARBOPLATIN [Suspect]
     Indication: RETINOBLASTOMA UNILATERAL
     Dosage: 30 MG/CYCLIC/INTRAARTERIAL
     Route: 013

REACTIONS (3)
  - Ocular vascular disorder [None]
  - Arterial occlusive disease [None]
  - Vitreous haemorrhage [None]
